FAERS Safety Report 7366330-9 (Version None)
Quarter: 2011Q1

REPORT INFORMATION
  Report Type: 
  Country: None (occurrence: None)
  Receive Date: 20110322
  Receipt Date: 20110314
  Transmission Date: 20110831
  Serious: Yes (Other)
  Sender: FDA-Public Use
  Company Number: US-AMGEN-USASP2011013933

PATIENT
  Age: 39 Year
  Sex: Male

DRUGS (2)
  1. ENBREL [Suspect]
     Indication: PSORIASIS
     Dosage: 50 MG, 2 TIMES/WK
     Dates: start: 19970701
  2. NEXIUM [Concomitant]

REACTIONS (11)
  - OSTEOPENIA [None]
  - INFLUENZA [None]
  - JOINT SWELLING [None]
  - ARTHRITIS INFECTIVE [None]
  - NASOPHARYNGITIS [None]
  - INJECTION SITE INDURATION [None]
  - HAEMATOCHEZIA [None]
  - INTERVERTEBRAL DISC DEGENERATION [None]
  - MUCOUS STOOLS [None]
  - BONE NEOPLASM [None]
  - SINUSITIS [None]
